FAERS Safety Report 6333932-8 (Version None)
Quarter: 2009Q3

REPORT INFORMATION
  Report Type: 
  Country: None (occurrence: None)
  Receive Date: 20090829
  Receipt Date: 20090623
  Transmission Date: 20100115
  Serious: No
  Sender: FDA-Public Use
  Company Number: US-ABBOTT-09P-163-0581456-00

PATIENT
  Sex: Male
  Weight: 88.53 kg

DRUGS (4)
  1. SIMCOR [Suspect]
     Indication: BLOOD CHOLESTEROL INCREASED
     Dosage: 500/20MG FOR 30 DAYS
     Dates: start: 20090501, end: 20090601
  2. SIMCOR [Suspect]
     Dosage: 750/20MG
     Dates: start: 20090601
  3. ATACAND [Concomitant]
     Indication: HYPERTENSION
     Dosage: 16MG WITH 12.5MG HCTZ
  4. COREG XL [Concomitant]
     Indication: HYPERTENSION

REACTIONS (2)
  - FLUSHING [None]
  - WEIGHT INCREASED [None]
